FAERS Safety Report 6806973-1 (Version None)
Quarter: 2010Q2

REPORT INFORMATION
  Report Type: 
  Country: None (occurrence: None)
  Receive Date: 20100629
  Receipt Date: 20080604
  Transmission Date: 20101027
  Serious: No
  Sender: FDA-Public Use
  Company Number: US-PFIZER INC-2008047991

PATIENT
  Sex: Male
  Weight: 81.818 kg

DRUGS (1)
  1. VIAGRA [Suspect]
     Indication: ERECTILE DYSFUNCTION
     Dates: start: 20080501

REACTIONS (2)
  - HAIR GROWTH ABNORMAL [None]
  - PENILE SIZE REDUCED [None]
